FAERS Safety Report 18721695 (Version 2)
Quarter: 2021Q1

REPORT INFORMATION
  Report Type: Report from Study
  Country: DE (occurrence: DE)
  Receive Date: 20210110
  Receipt Date: 20210112
  Transmission Date: 20210419
  Serious: Yes (Death, Other)
  Sender: FDA-Public Use
  Company Number: DE-JNJFOC-20210106612

PATIENT

DRUGS (4)
  1. LENALIDOMIDE [Concomitant]
     Active Substance: LENALIDOMIDE
     Indication: PLASMA CELL MYELOMA
     Route: 065
  2. POMALIDOMIDE [Concomitant]
     Active Substance: POMALIDOMIDE
     Indication: PLASMA CELL MYELOMA
     Route: 065
  3. BORTEZOMIB. [Concomitant]
     Active Substance: BORTEZOMIB
     Indication: PLASMA CELL MYELOMA
     Route: 065
  4. DARATUMUMAB [Suspect]
     Active Substance: DARATUMUMAB
     Indication: PLASMA CELL MYELOMA
     Route: 042
     Dates: start: 201604, end: 201811

REACTIONS (14)
  - Ocular discomfort [Unknown]
  - Bronchospasm [Unknown]
  - Urinary tract infection [Unknown]
  - Cough [Unknown]
  - Musculoskeletal pain [Unknown]
  - Dyspnoea [Unknown]
  - Infusion related reaction [Unknown]
  - Chills [Unknown]
  - Face oedema [Unknown]
  - Drug ineffective [Unknown]
  - Rash [Unknown]
  - Sepsis [Fatal]
  - Acute coronary syndrome [Unknown]
  - Pneumonia [Unknown]
